FAERS Safety Report 6165809-5 (Version None)
Quarter: 2009Q2

REPORT INFORMATION
  Report Type: 
  Country: None (occurrence: None)
  Receive Date: 20090423
  Receipt Date: 20090416
  Transmission Date: 20091009
  Serious: Yes (Disabling)
  Sender: FDA-Public Use
  Company Number: US-GILEAD-2008-0018565

PATIENT
  Sex: Female
  Weight: 49.032 kg

DRUGS (13)
  1. LETAIRIS [Suspect]
     Indication: PULMONARY ARTERIAL HYPERTENSION
     Route: 048
  2. LETAIRIS [Suspect]
     Route: 048
  3. DIGOXIN [Concomitant]
  4. SPIRONOLACTONE [Concomitant]
  5. FUROSEMIDE [Concomitant]
  6. REVATIO [Concomitant]
  7. COMBIVENT [Concomitant]
  8. QVAR 40 [Concomitant]
  9. DOCUSATE SODIUM [Concomitant]
  10. ROBITUSSIN DM [Concomitant]
  11. LORAZEPAM [Concomitant]
  12. MORPHINE [Concomitant]
  13. CALCITRIOL [Concomitant]

REACTIONS (1)
  - PRURITUS [None]
